FAERS Safety Report 24907529 (Version 2)
Quarter: 2025Q1

REPORT INFORMATION
  Report Type: Report from Study
  Country: CA (occurrence: CA)
  Receive Date: 20250131
  Receipt Date: 20250318
  Transmission Date: 20250409
  Serious: Yes (Death, Hospitalization)
  Sender: JOHNSON AND JOHNSON
  Company Number: CA-JNJFOC-20250148121

PATIENT
  Age: 66 Year
  Sex: Male
  Weight: 104 kg

DRUGS (2)
  1. REMICADE [Suspect]
     Active Substance: INFLIXIMAB
     Indication: Rheumatoid arthritis
     Route: 041
     Dates: start: 20100728
  2. REMICADE [Suspect]
     Active Substance: INFLIXIMAB
     Route: 041

REACTIONS (6)
  - Death [Fatal]
  - Pneumonia [Not Recovered/Not Resolved]
  - Pulmonary embolism [Not Recovered/Not Resolved]
  - Influenza [Not Recovered/Not Resolved]
  - Hospitalisation [Unknown]
  - Gout [Unknown]

NARRATIVE: CASE EVENT DATE: 20250311
